FAERS Safety Report 6335620-0 (Version None)
Quarter: 2009Q3

REPORT INFORMATION
  Report Type: 
  Country: None (occurrence: None)
  Receive Date: 20090826
  Receipt Date: 20090818
  Transmission Date: 20100115
  Serious: Yes (Hospitalization)
  Sender: FDA-Public Use
  Company Number: GXKR2009JP09095

PATIENT
  Age: 81 Year
  Sex: Male

DRUGS (3)
  1. AZITHROMYCIN [Suspect]
     Indication: OTITIS MEDIA
     Dosage: 500 MG/DAY
  2. VALSARTAN [Concomitant]
  3. NAFTOPIDIL    (NAFTOPIDIL) [Concomitant]

REACTIONS (5)
  - AGRANULOCYTOSIS [None]
  - EAR INFECTION [None]
  - FEBRILE NEUTROPENIA [None]
  - HAEMOGLOBIN DECREASED [None]
  - MASTOIDITIS [None]
